FAERS Safety Report 5075759-3 (Version None)
Quarter: 2006Q3

REPORT INFORMATION
  Report Type: 
  Country: None (occurrence: None)
  Receive Date: 20060809
  Receipt Date: 20060524
  Transmission Date: 20061208
  Serious: Yes (Hospitalization)
  Sender: FDA-Public Use
  Company Number: DK-NOVOPROD-253620

PATIENT
  Age: 63 Year
  Sex: Female
  Weight: 107 kg

DRUGS (13)
  1. ZARATOR                            /01326101/ [Concomitant]
     Indication: HYPERCHOLESTEROLAEMIA
     Dosage: 10 MG, QD
     Dates: start: 20010614, end: 20030701
  2. SPIRIX [Concomitant]
     Indication: DIURETIC THERAPY
     Dosage: 50 MG, QD
     Dates: start: 20010607, end: 20030616
  3. SPIRIX [Concomitant]
     Dosage: 75 MG, QD
     Dates: start: 20030617
  4. GABAPENTIN [Concomitant]
     Dosage: 900 MG, QD
     Dates: start: 20030115, end: 20030519
  5. GABAPENTIN [Concomitant]
     Dosage: 1200 MG, QD
     Dates: start: 20030520, end: 20030701
  6. INSULATARD FLEXPEN HM(GE) [Suspect]
     Indication: INSULIN-REQUIRING TYPE II DIABETES MELLITUS
     Dosage: 40 IU, QD
     Route: 042
     Dates: start: 20030313
  7. BLINDED [Concomitant]
     Dosage: 1 TAB, QD
     Route: 048
     Dates: start: 20030313
  8. BLINDED [Concomitant]
     Dosage: 2 TAB, BID
     Route: 048
     Dates: start: 20030313
  9. COVERSYL                           /00790701/ [Concomitant]
     Indication: BLOOD PRESSURE
     Dosage: 2 MG, QD
     Dates: start: 20010607
  10. PAMOL [Concomitant]
     Dosage: 1 G, QD
     Dates: start: 20030115
  11. FURIX [Concomitant]
     Indication: OEDEMA
     Dosage: 120 MG, QD
     Dates: start: 20030521, end: 20040701
  12. FURIX [Concomitant]
     Dosage: 80 MG, QD
     Dates: start: 19930113, end: 20030520
  13. ARTHROTEC                          /00372302/ [Concomitant]
     Indication: PAIN
     Dosage: 1 TAB, UNK
     Dates: start: 20040319

REACTIONS (2)
  - OEDEMA [None]
  - WEIGHT INCREASED [None]
